FAERS Safety Report 4366175-8 (Version None)
Quarter: 2004Q2

REPORT INFORMATION
  Report Type: 
  Country: None (occurrence: None)
  Receive Date: 20040524
  Receipt Date: 20040514
  Transmission Date: 20050107
  Serious: Yes (Hospitalization, Other)
  Sender: FDA-Public Use
  Company Number: 2004-04-1649

PATIENT
  Age: 44 Year
  Sex: Male
  Weight: 69 kg

DRUGS (4)
  1. REBETOL [Suspect]
     Indication: HEPATITIS C
     Dosage: 1000 MG QD ORAL
     Route: 048
     Dates: start: 20040204, end: 20040427
  2. PEGASYS [Suspect]
     Indication: HEPATITIS C
     Dosage: 135 MCG QW SUBCUTANEOUS
     Route: 058
     Dates: start: 20040204
  3. CALCIUM ACETATE TABLETS [Concomitant]
  4. ERYTHROPOETIN HUMAN INJECTABLE [Concomitant]

REACTIONS (8)
  - CATHETER RELATED INFECTION [None]
  - CHILLS [None]
  - JOINT SWELLING [None]
  - ORAL CANDIDIASIS [None]
  - PANCYTOPENIA [None]
  - PERITONEAL DIALYSIS [None]
  - SICCA SYNDROME [None]
  - STAPHYLOCOCCAL INFECTION [None]
